FAERS Safety Report 15635818 (Version 4)
Quarter: 2025Q3

REPORT INFORMATION
  Report Type: Spontaneous
  Country: EU (occurrence: EU)
  Receive Date: 20181120
  Receipt Date: 20250816
  Transmission Date: 20251021
  Serious: Yes (Death, Hospitalization, Other)
  Sender: AUROBINDO
  Company Number: EU-AUROBINDO-AUR-APL-2018-055904

PATIENT
  Age: 58 Year
  Sex: Male

DRUGS (1)
  1. AMOXICILLIN\CLAVULANIC ACID [Suspect]
     Active Substance: AMOXICILLIN\CLAVULANIC ACID
     Indication: Tonsillitis
     Route: 048

REACTIONS (10)
  - Cholestasis [Fatal]
  - Rash pruritic [Fatal]
  - Hyperhidrosis [Fatal]
  - Jaundice [Fatal]
  - Asthenia [Fatal]
  - Pruritus [Fatal]
  - Colitis [Fatal]
  - Drug-induced liver injury [Recovering/Resolving]
  - Hepatic lesion [Unknown]
  - Cholestatic liver injury [Unknown]
